FAERS Safety Report 11684448 (Version 18)
Quarter: 2020Q1

REPORT INFORMATION
  Report Type: Spontaneous
  Country: US (occurrence: US)
  Receive Date: 20151029
  Receipt Date: 20200319
  Transmission Date: 20200409
  Serious: Yes (Hospitalization, Other)
  Sender: FDA-Public Use
  Company Number: US-PFIZER INC-2015357046

PATIENT
  Age: 63 Year
  Sex: Male
  Weight: 91 kg

DRUGS (8)
  1. LYRICA [Suspect]
     Active Substance: PREGABALIN
     Indication: NERVE INJURY
     Dosage: 200 MG, 4X/DAY
     Route: 048
  2. LYRICA [Suspect]
     Active Substance: PREGABALIN
     Indication: NEURALGIA
     Dosage: 200 MG, 4X/DAY
     Route: 048
     Dates: end: 201807
  3. LYRICA [Suspect]
     Active Substance: PREGABALIN
     Indication: NEUROPATHY PERIPHERAL
     Dosage: 200 MG, 4X/DAY
     Route: 048
  4. LYRICA [Suspect]
     Active Substance: PREGABALIN
     Dosage: 200 MG, 4X/DAY
     Route: 048
  5. LYRICA [Suspect]
     Active Substance: PREGABALIN
     Indication: BACK PAIN
     Dosage: 200 MG, 4X/DAY
     Route: 048
     Dates: start: 2014
  6. LYRICA [Suspect]
     Active Substance: PREGABALIN
     Indication: HYPOAESTHESIA
     Dosage: UNK
  7. LYRICA [Suspect]
     Active Substance: PREGABALIN
     Dosage: 200 MG, 4X/DAY
     Route: 048
  8. LYRICA [Suspect]
     Active Substance: PREGABALIN
     Dosage: 200 MG, UNK

REACTIONS (15)
  - Balance disorder [Recovering/Resolving]
  - Nephrolithiasis [Unknown]
  - Pyrexia [Unknown]
  - Head injury [Unknown]
  - Sepsis [Unknown]
  - Intentional product use issue [Unknown]
  - Cervical spinal stenosis [Unknown]
  - Prescribed overdose [Unknown]
  - Limb discomfort [Unknown]
  - Lipoma [Unknown]
  - Drug ineffective [Unknown]
  - Fall [Unknown]
  - Muscular weakness [Unknown]
  - Neck injury [Recovering/Resolving]
  - Neck pain [Unknown]

NARRATIVE: CASE EVENT DATE: 2014
